FAERS Safety Report 15246910 (Version 2)
Quarter: 2018Q3

REPORT INFORMATION
  Report Type: Report from Study
  Country: US (occurrence: US)
  Receive Date: 20180806
  Receipt Date: 20180816
  Transmission Date: 20181010
  Serious: Yes (Other)
  Sender: FDA-Public Use
  Company Number: US-AMGEN-USASL2018106648

PATIENT
  Age: 61 Year
  Sex: Female

DRUGS (1)
  1. ENBREL [Suspect]
     Active Substance: ETANERCEPT
     Indication: LICHEN PLANUS
     Dosage: 50 MG, QWK
     Route: 065

REACTIONS (3)
  - Choking [Unknown]
  - Administration site infection [Unknown]
  - Off label use [Unknown]

NARRATIVE: CASE EVENT DATE: 20180723
